FAERS Safety Report 17626661 (Version 1)
Quarter: 2020Q2

REPORT INFORMATION
  Report Type: Spontaneous
  Country: CA (occurrence: CA)
  Receive Date: 20200405
  Receipt Date: 20200405
  Transmission Date: 20200713
  Serious: Yes (Hospitalization, Other)
  Sender: FDA-Public Use
  Company Number: CA-SAMSUNG BIOEPIS-SB-2020-10573

PATIENT
  Age: 68 Year
  Sex: Female

DRUGS (4)
  1. INFLIXIMAB [Suspect]
     Active Substance: INFLIXIMAB
     Indication: CROHN^S DISEASE
     Route: 042
  2. ACETAMINOPHEN. [Concomitant]
     Active Substance: ACETAMINOPHEN
     Indication: PREMEDICATION
     Route: 065
  3. PREDNISONE. [Concomitant]
     Active Substance: PREDNISONE
     Indication: PREMEDICATION
     Dosage: UNKNOWN
     Route: 065
  4. HYDROCORTISONE. [Concomitant]
     Active Substance: HYDROCORTISONE
     Indication: PREMEDICATION
     Route: 065

REACTIONS (11)
  - Inappropriate schedule of product administration [Recovered/Resolved]
  - C-reactive protein increased [Recovered/Resolved]
  - Oxygen saturation decreased [Recovered/Resolved]
  - Intentional product use issue [Recovered/Resolved]
  - Eye abscess [Recovered/Resolved]
  - Somnolence [Recovered/Resolved]
  - Drug specific antibody [Recovered/Resolved]
  - Fatigue [Recovered/Resolved]
  - Off label use [Recovered/Resolved]
  - Clostridium difficile infection [Recovered/Resolved]
  - Eye infection [Recovered/Resolved]
